FAERS Safety Report 15305552 (Version 1)
Quarter: 2018Q3

REPORT INFORMATION
  Report Type: Spontaneous
  Country: FR (occurrence: FR)
  Receive Date: 20180822
  Receipt Date: 20180822
  Transmission Date: 20181010
  Serious: Yes (Hospitalization)
  Sender: FDA-Public Use
  Company Number: FR-TEVA-2018-FR-945332

PATIENT
  Age: 51 Year
  Sex: Male
  Weight: 81 kg

DRUGS (15)
  1. RAMIPRIL. [Suspect]
     Active Substance: RAMIPRIL
     Indication: SUICIDE ATTEMPT
     Route: 048
     Dates: start: 20180629, end: 20180629
  2. MAGNESPASMYL 47,4 MG, COMPRIM? PELLICUL? [Concomitant]
  3. DEXERYL (CHLORPHENAMINE MALEATE\DEXTROMETHORPHAN HYDROBROMIDE\GUAIFENESIN\PHENYLEPHRINE HYDROCHLORIDE) [Concomitant]
     Active Substance: CHLORPHENIRAMINE MALEATE\DEXTROMETHORPHAN HYDROBROMIDE\GUAIFENESIN\PHENYLEPHRINE HYDROCHLORIDE
  4. PRINCI B [Concomitant]
  5. KARDEGIC [Concomitant]
     Active Substance: ASPIRIN DL-LYSINE
  6. XATRAL LP 10 MG, COMPRIM? ? LIB?RATION PROLONG?E [Concomitant]
     Active Substance: ALFUZOSIN
  7. ACIDE URSODESOXYCHOLIQUE [Suspect]
     Active Substance: URSODIOL
     Indication: SUICIDE ATTEMPT
     Dosage: 20 MG
     Route: 048
     Dates: start: 20180629, end: 20180629
  8. AMLODIPINE [Concomitant]
     Active Substance: AMLODIPINE BESYLATE
  9. BISOCE 5 MG, COMPRIM? PELLICUL? S?CABLE [Concomitant]
     Active Substance: BISOPROLOL
  10. MELATONINE [Concomitant]
     Active Substance: MELATONIN
  11. PREGABALINE [Concomitant]
     Active Substance: PREGABALIN
  12. DUPHALAC [Concomitant]
     Active Substance: LACTULOSE
  13. TOVIAZ [Concomitant]
     Active Substance: FESOTERODINE FUMARATE
  14. NEFOPAM (CHLORHYDRATE DE) [Suspect]
     Active Substance: NEFOPAM HYDROCHLORIDE
     Indication: SUICIDE ATTEMPT
     Route: 048
     Dates: start: 20180629, end: 20180629
  15. LANSOPRAZOLE. [Concomitant]
     Active Substance: LANSOPRAZOLE

REACTIONS (1)
  - Hypotension [Recovered/Resolved]

NARRATIVE: CASE EVENT DATE: 20180630
